FAERS Safety Report 6543215-9 (Version None)
Quarter: 2010Q1

REPORT INFORMATION
  Report Type: 
  Country: None (occurrence: None)
  Receive Date: 20100120
  Receipt Date: 20100107
  Transmission Date: 20100710
  Serious: Yes (Hospitalization)
  Sender: FDA-Public Use
  Company Number: US-PFIZER INC-2010003622

PATIENT
  Sex: Female

DRUGS (1)
  1. XALATAN [Suspect]
     Indication: GLAUCOMA
     Dosage: 1 GTT IN EACH EYE, 1X/DAY
     Route: 047
     Dates: start: 20070101

REACTIONS (3)
  - APPLICATION SITE REACTION [None]
  - OEDEMA PERIPHERAL [None]
  - THROMBOSIS [None]
